FAERS Safety Report 21287179 (Version 5)
Quarter: 2022Q4

REPORT INFORMATION
  Report Type: Spontaneous
  Country: CA (occurrence: CA)
  Receive Date: 20220902
  Receipt Date: 20221129
  Transmission Date: 20230112
  Serious: Yes (Hospitalization, Other)
  Sender: FDA-Public Use
  Company Number: CA-PFIZER INC-PV202200009372

PATIENT
  Age: 72 Year
  Sex: Male

DRUGS (3)
  1. RUXIENCE [Suspect]
     Active Substance: RITUXIMAB-PVVR
     Indication: Follicular lymphoma
     Dosage: 716 MG (375 MG/M2) DAYS 1, 8, 15, AND 22 OF CYCLE 1 AND DAY 1 OF CYCLES 2 TO 5 EVERY 28 DAYS
     Route: 042
  2. RUXIENCE [Suspect]
     Active Substance: RITUXIMAB-PVVR
     Dosage: 375 MG/M2, WEEKLY (4 DOSES) OF CYCLE 1, DAY 1 OF CYCLE 2 TO 5 EVERY 28 DAYS
     Route: 042
     Dates: start: 20220822
  3. LENALIDOMIDE [Suspect]
     Active Substance: LENALIDOMIDE
     Dosage: UNK

REACTIONS (9)
  - Loss of consciousness [Unknown]
  - Weight decreased [Unknown]
  - Asthenia [Not Recovered/Not Resolved]
  - Diarrhoea [Not Recovered/Not Resolved]
  - Balance disorder [Unknown]
  - Dizziness [Unknown]
  - Fall [Unknown]
  - Somnolence [Unknown]
  - Toxicity to various agents [Unknown]

NARRATIVE: CASE EVENT DATE: 20220101
